FAERS Safety Report 21916834 (Version 1)
Quarter: 2023Q1

REPORT INFORMATION
  Report Type: Spontaneous
  Country: None (occurrence: US)
  Receive Date: 20230126
  Receipt Date: 20230126
  Transmission Date: 20230418
  Serious: No
  Sender: FDA-Public Use
  Company Number: US-GREER Laboratories, Inc.-2137096

PATIENT
  Age: 10 Year
  Sex: Male
  Weight: 64.3 kg

DRUGS (32)
  1. STANDARDIZED MITE, DERMATOPHAGOIDES FARINAE [Suspect]
     Active Substance: DERMATOPHAGOIDES FARINAE
     Indication: Rhinitis allergic
     Route: 058
     Dates: start: 20220701
  2. STANDARDIZED MITE, DERMATOPHAGOIDES PTERONYSSINUS [Suspect]
     Active Substance: DERMATOPHAGOIDES PTERONYSSINUS
     Route: 058
     Dates: start: 20220701
  3. STANDARDIZED CAT HAIR [Suspect]
     Active Substance: FELIS CATUS HAIR
     Route: 058
     Dates: start: 20220701
  4. WHITE ALDER POLLEN [Suspect]
     Active Substance: ALNUS RHOMBIFOLIA POLLEN
     Route: 058
     Dates: start: 20220701
  5. ASH MIXTURE [Suspect]
     Active Substance: FRAXINUS AMERICANA POLLEN\FRAXINUS PENNSYLVANICA POLLEN
     Route: 058
     Dates: start: 20220701
  6. WHITE OAK POLLEN [Suspect]
     Active Substance: QUERCUS ALBA POLLEN
     Route: 058
     Dates: start: 20220701
  7. BOX ELDER POLLEN [Suspect]
     Active Substance: ACER NEGUNDO POLLEN
     Route: 058
     Dates: start: 20220701
  8. RED CEDAR POLLEN [Suspect]
     Active Substance: JUNIPERUS VIRGINIANA POLLEN
     Route: 058
     Dates: start: 20220701
  9. WHITE POPLAR POLLEN [Suspect]
     Active Substance: POPULUS ALBA POLLEN
     Route: 058
     Dates: start: 20220701
  10. HACKBERRY POLLEN [Suspect]
     Active Substance: CELTIS OCCIDENTALIS POLLEN
     Route: 058
     Dates: start: 20220701
  11. BLACK LOCUST BLOSSOM [Suspect]
     Active Substance: ROBINIA PSEUDOACACIA POLLEN
     Route: 058
     Dates: start: 20220701
  12. BLACK WALNUT (JUGLANS NIGRA POLLEN) [Suspect]
     Active Substance: JUGLANS NIGRA POLLEN
     Route: 058
     Dates: start: 20220701
  13. JOHNSON GRASS POLLEN [Suspect]
     Active Substance: SORGHUM HALEPENSE POLLEN
     Route: 058
     Dates: start: 20220701
  14. STANDARDIZED TIMOTHY GRASS [Suspect]
     Active Substance: PHLEUM PRATENSE POLLEN
     Route: 058
     Dates: start: 20220701
  15. STANDARDIZED ORCHARD GRASS [Suspect]
     Active Substance: DACTYLIS GLOMERATA POLLEN
     Route: 058
     Dates: start: 20220701
  16. CARELESS WEED, AMARANTH GREEN [Suspect]
     Active Substance: AMARANTHUS HYBRIDUS POLLEN
     Route: 058
     Dates: start: 20220701
  17. GIANT RAGWEED POLLEN [Suspect]
     Active Substance: AMBROSIA TRIFIDA POLLEN
     Route: 058
     Dates: start: 20220701
  18. EASTERN SYCAMORE POLLEN [Suspect]
     Active Substance: PLATANUS OCCIDENTALIS POLLEN
     Route: 058
     Dates: start: 20220701
  19. EPICOCCUM NIGRUM [Suspect]
     Active Substance: EPICOCCUM NIGRUM
     Route: 058
     Dates: start: 20220701
  20. GEOTRICHUM CANDIDUM [Suspect]
     Active Substance: GEOTRICHUM CANDIDUM
     Route: 058
     Dates: start: 20220701
  21. CLADOSPORIUM SPHAEROSPERMUM [Suspect]
     Active Substance: CLADOSPORIUM SPHAEROSPERMUM
     Route: 058
     Dates: start: 20220701
  22. PENICILLIUM MIX [Suspect]
     Active Substance: PENICILLIUM CAMEMBERTI\PENICILLIUM CHRYSOGENUM VAR. CHRYSOGENUM\PENICILLIUM DIGITATUM\PENICILLIUM RO
     Route: 058
     Dates: start: 20220701
  23. RHIZOPUS STOLONIFER [Suspect]
     Active Substance: RHIZOPUS STOLONIFER
     Route: 058
     Dates: start: 20220701
  24. RHODOTORULA MUCILAGINOSA [Suspect]
     Active Substance: RHODOTORULA MUCILAGINOSA
     Route: 058
     Dates: start: 20220701
  25. STEMPHYLIUM SOLANI [Suspect]
     Active Substance: STEMPHYLIUM SOLANI
     Route: 058
     Dates: start: 20220701
  26. FLOVENT HFA [Concomitant]
     Active Substance: FLUTICASONE PROPIONATE
     Route: 055
  27. MONTELUKAST SODIUM [Concomitant]
     Active Substance: MONTELUKAST SODIUM
  28. FLONASE [Concomitant]
     Active Substance: FLUTICASONE PROPIONATE
     Route: 045
  29. CETIRIZINE [Concomitant]
     Active Substance: CETIRIZINE HYDROCHLORIDE
  30. MULTIVITAMIN UNSPECIFIED [Concomitant]
  31. ALCLOMETASONE DIPROPIONATE [Concomitant]
     Active Substance: ALCLOMETASONE DIPROPIONATE
  32. SHAGBARK HICKORY POLLEN [Suspect]
     Active Substance: CARYA OVATA POLLEN
     Route: 058
     Dates: start: 20220701

REACTIONS (5)
  - Pruritus [Recovered/Resolved]
  - Urticaria [Recovered/Resolved]
  - Dizziness [Recovered/Resolved]
  - Throat clearing [Recovered/Resolved]
  - Administration site reaction [Recovered/Resolved]

NARRATIVE: CASE EVENT DATE: 20221005
